FAERS Safety Report 5909406-2 (Version None)
Quarter: 2008Q4

REPORT INFORMATION
  Report Type: 
  Country: None (occurrence: None)
  Receive Date: 20081006
  Receipt Date: 20080930
  Transmission Date: 20090506
  Serious: No
  Sender: FDA-Public Use
  Company Number: US-B.I. PHARMACEUTICALS,INC./RIDGEFIELD-2008-BP-14220BP

PATIENT
  Age: 59 Year
  Sex: Female

DRUGS (9)
  1. SPIRIVA [Suspect]
     Indication: BRONCHIAL IRRITATION
     Dosage: 18MCG
     Route: 055
     Dates: start: 20080908, end: 20080908
  2. SPIRIVA [Suspect]
     Indication: CHRONIC OBSTRUCTIVE PULMONARY DISEASE
  3. OXYGEN [Concomitant]
  4. CLONIDINE [Concomitant]
     Indication: HYPERTENSION
  5. VERAPAMIL [Concomitant]
     Indication: HYPERTENSION
  6. ACIPHEX [Concomitant]
  7. VITAMINS PLUS EXTRA C [Concomitant]
  8. ASPIRIN [Concomitant]
  9. TYLENOL (CAPLET) [Concomitant]

REACTIONS (2)
  - ANXIETY [None]
  - VISION BLURRED [None]
